FAERS Safety Report 8964183 (Version 1)
Quarter: 2012Q4

REPORT INFORMATION
  Report Type: 
  Country: CA (occurrence: CA)
  Receive Date: 20121213
  Receipt Date: 20121213
  Transmission Date: 20130627
  Serious: Yes (Other)
  Sender: FDA-Public Use
  Company Number: CA-B.I. PHARMACEUTICALS,INC./RIDGEFIELD-2012-CN-02514CN

PATIENT
  Sex: Male

DRUGS (6)
  1. PRADAX [Suspect]
     Route: 065
  2. ASPIRIN [Suspect]
     Route: 065
  3. COUMADIN [Suspect]
     Route: 065
  4. HEPARIN SODIUM [Suspect]
     Route: 065
  5. PLAVIX [Suspect]
     Route: 065
  6. THROMBOLYTICS [Suspect]
     Route: 065

REACTIONS (1)
  - Drug intolerance [Unknown]
